FAERS Safety Report 8362053 (Version 2)
Quarter: 2015Q3

REPORT INFORMATION
  Report Type: Report from Study
  Country: US (occurrence: US)
  Receive Date: 20120130
  Receipt Date: 20150710
  Transmission Date: 20151125
  Serious: Yes (Death)
  Sender: FDA-Public Use
  Company Number: US-ROCHE-1033626

PATIENT
  Sex: Male

DRUGS (37)
  1. DILANTIN [Concomitant]
     Active Substance: PHENYTOIN
     Route: 065
  2. DILANTIN [Concomitant]
     Active Substance: PHENYTOIN
     Route: 065
  3. ALOXI [Concomitant]
     Active Substance: PALONOSETRON HYDROCHLORIDE
     Route: 042
  4. FRAGMIN [Concomitant]
     Active Substance: DALTEPARIN SODIUM
     Route: 065
  5. FENTANYL. [Concomitant]
     Active Substance: FENTANYL
     Route: 042
  6. EMEND [Concomitant]
     Active Substance: APREPITANT
     Dosage: AS PER NEEDED
     Route: 065
  7. AVASTIN [Suspect]
     Active Substance: BEVACIZUMAB
     Route: 042
  8. AVASTIN [Suspect]
     Active Substance: BEVACIZUMAB
     Route: 042
  9. AVASTIN [Suspect]
     Active Substance: BEVACIZUMAB
     Route: 042
  10. PHENERGAN [Concomitant]
     Active Substance: PROMETHAZINE HYDROCHLORIDE
     Dosage: AS PER NEEDED
     Route: 065
  11. ATROPINE. [Concomitant]
     Active Substance: ATROPINE
     Route: 042
  12. VERSED [Concomitant]
     Active Substance: MIDAZOLAM HYDROCHLORIDE
     Route: 065
  13. IMODIUM [Concomitant]
     Active Substance: LOPERAMIDE HYDROCHLORIDE
  14. IRINOTECAN [Concomitant]
     Active Substance: IRINOTECAN
     Route: 042
  15. ZOFRAN [Concomitant]
     Active Substance: ONDANSETRON HYDROCHLORIDE
     Route: 065
  16. DECADRON [Concomitant]
     Active Substance: DEXAMETHASONE
     Route: 065
  17. DOXYCYCLINE. [Concomitant]
     Active Substance: DOXYCYCLINE
     Route: 065
  18. IRINOTECAN [Concomitant]
     Active Substance: IRINOTECAN
     Route: 065
  19. DILANTIN [Concomitant]
     Active Substance: PHENYTOIN
     Route: 048
  20. OMEPRAZOLE. [Concomitant]
     Active Substance: OMEPRAZOLE
     Route: 048
  21. AMBIEN [Concomitant]
     Active Substance: ZOLPIDEM TARTRATE
     Route: 065
  22. AVASTIN [Suspect]
     Active Substance: BEVACIZUMAB
     Indication: BRAIN NEOPLASM MALIGNANT
     Route: 042
     Dates: start: 20070406
  23. IRINOTECAN [Concomitant]
     Active Substance: IRINOTECAN
     Route: 065
  24. DECADRON [Concomitant]
     Active Substance: DEXAMETHASONE
     Route: 065
  25. TEMODAR [Concomitant]
     Active Substance: TEMOZOLOMIDE
     Route: 065
  26. DILANTIN [Concomitant]
     Active Substance: PHENYTOIN
     Route: 065
  27. DILANTIN [Concomitant]
     Active Substance: PHENYTOIN
     Route: 048
  28. COMPAZINE [Concomitant]
     Active Substance: PROCHLORPERAZINE MALEATE
     Route: 042
  29. KEFLEX [Concomitant]
     Active Substance: CEPHALEXIN
     Route: 065
  30. AVASTIN [Suspect]
     Active Substance: BEVACIZUMAB
     Route: 042
  31. IRINOTECAN [Concomitant]
     Active Substance: IRINOTECAN
     Route: 042
  32. MARINOL (UNITED STATES) [Concomitant]
     Dosage: 2-5 MG
     Route: 065
  33. DECADRON [Concomitant]
     Active Substance: DEXAMETHASONE
     Route: 042
  34. KEPPRA [Concomitant]
     Active Substance: LEVETIRACETAM
     Route: 065
  35. ATIVAN [Concomitant]
     Active Substance: LORAZEPAM
     Dosage: 0.5 MG TO 1-2MG
     Route: 065
  36. DECADRON [Concomitant]
     Active Substance: DEXAMETHASONE
     Route: 065
  37. DEXAMETHASONE. [Concomitant]
     Active Substance: DEXAMETHASONE
     Route: 048

REACTIONS (16)
  - Gynaecomastia [Unknown]
  - Disease progression [Fatal]
  - Thrombophlebitis superficial [Unknown]
  - Aphasia [Unknown]
  - Hypertension [Unknown]
  - Gait disturbance [Unknown]
  - Fatigue [Unknown]
  - Abnormal dreams [Unknown]
  - Vomiting [Unknown]
  - Breast tenderness [Unknown]
  - Pain in extremity [Unknown]
  - Rectal haemorrhage [Unknown]
  - Hemiparesis [Unknown]
  - Folliculitis [Unknown]
  - Insomnia [Unknown]
  - Dermatitis exfoliative generalised [Unknown]
